FAERS Safety Report 8054509-2 (Version None)
Quarter: 2012Q1

REPORT INFORMATION
  Report Type: 
  Country: None (occurrence: None)
  Receive Date: 20120118
  Receipt Date: 20120111
  Transmission Date: 20120608
  Serious: Yes (Other)
  Sender: FDA-Public Use
  Company Number: US-ROCHE-793948

PATIENT
  Sex: Female
  Weight: 63.56 kg

DRUGS (1)
  1. ACCUTANE [Suspect]
     Indication: ACNE
     Dosage: 20/40/60 MG DAILY
     Route: 065
     Dates: start: 19940324, end: 19950908

REACTIONS (9)
  - BLOOD URIC ACID DECREASED [None]
  - COLITIS ULCERATIVE [None]
  - DRY SKIN [None]
  - EMOTIONAL DISTRESS [None]
  - EPISTAXIS [None]
  - ARTHRALGIA [None]
  - PANIC ATTACK [None]
  - INFLAMMATORY BOWEL DISEASE [None]
  - IRRITABLE BOWEL SYNDROME [None]
